FAERS Safety Report 23456753 (Version 6)
Quarter: 2024Q1

REPORT INFORMATION
  Report Type: Spontaneous
  Country: US (occurrence: US)
  Receive Date: 20240130
  Receipt Date: 20240318
  Transmission Date: 20240409
  Serious: No
  Sender: FDA-Public Use
  Company Number: US-PFIZER INC-202400008482

PATIENT
  Age: 59 Year
  Sex: Female
  Weight: 90.72 kg

DRUGS (3)
  1. SOMATROPIN [Suspect]
     Active Substance: SOMATROPIN
     Indication: Growth hormone deficiency
     Dosage: 0.4 MG, 1X/DAY
     Route: 058
     Dates: start: 20240106
  2. SOMATROPIN [Suspect]
     Active Substance: SOMATROPIN
     Indication: Asthenia
     Dosage: 0.4 MG, 1X/DAY
     Route: 058
     Dates: start: 20240107
  3. SOMATROPIN [Suspect]
     Active Substance: SOMATROPIN
     Dosage: 0.4 MG, DAILY

REACTIONS (7)
  - Device difficult to use [Unknown]
  - Injection site discharge [Unknown]
  - Inadvertent injection air bubble [Unknown]
  - Discomfort [Unknown]
  - Device leakage [Unknown]
  - Device physical property issue [Unknown]
  - Product communication issue [Unknown]

NARRATIVE: CASE EVENT DATE: 20240101
